FAERS Safety Report 6653401-5 (Version None)
Quarter: 2010Q1

REPORT INFORMATION
  Report Type: 
  Country: None (occurrence: None)
  Receive Date: 20100326
  Receipt Date: 20100322
  Transmission Date: 20100710
  Serious: Yes (Death)
  Sender: FDA-Public Use
  Company Number: US-ROCHE-692638

PATIENT
  Sex: Female
  Weight: 87 kg

DRUGS (12)
  1. TOCILIZUMAB [Suspect]
     Indication: RHEUMATOID ARTHRITIS
     Dosage: THE PATIENT RECEIVED HER LAST DOSE PRIOR TO THE ONSET OF THE DEATH ON 16 FEB 2010
     Route: 065
  2. BLINDED TOCILIZUMAB [Suspect]
     Indication: RHEUMATOID ARTHRITIS
     Dosage: THE PATIENT RECEIVED THE BLINDED TOCILIZUMAB FOR 24 WEEKS (ACCORDING TO THE PROTOCOL).
     Route: 042
     Dates: start: 20080312
  3. LEVOTHYROXINE SODIUM [Concomitant]
     Dates: start: 19900101
  4. METOPROLOL [Concomitant]
     Dates: start: 20010601
  5. NEXIUM [Concomitant]
     Dates: start: 20011001
  6. EVISTA [Concomitant]
     Dates: start: 20081001
  7. EVISTA [Concomitant]
  8. METHOTREXATE [Concomitant]
     Dates: start: 20091025
  9. FOLIC ACID [Concomitant]
     Dates: start: 20001201
  10. PREDNISONE TAB [Concomitant]
     Dates: start: 20000811
  11. IBUPROFEN [Concomitant]
     Dates: start: 20050625
  12. LOVASTATIN [Concomitant]
     Dates: start: 20080601

REACTIONS (1)
  - DEATH [None]
